FAERS Safety Report 6576270-0 (Version None)
Quarter: 2010Q1

REPORT INFORMATION
  Report Type: 
  Country: None (occurrence: None)
  Receive Date: 20100210
  Receipt Date: 20100201
  Transmission Date: 20100710
  Serious: Yes (Hospitalization)
  Sender: FDA-Public Use
  Company Number: US-BIOGENIDEC-2010BI003548

PATIENT
  Age: 71 Year
  Sex: Female

DRUGS (3)
  1. AVONEX [Suspect]
     Indication: MULTIPLE SCLEROSIS
     Route: 030
     Dates: start: 20040301
  2. AVONEX [Suspect]
     Route: 030
     Dates: start: 19960901, end: 20030901
  3. AVONEX [Suspect]
     Route: 030
     Dates: start: 20030901, end: 20040301

REACTIONS (2)
  - ANKLE FRACTURE [None]
  - FALL [None]
